FAERS Safety Report 21897103 (Version 2)
Quarter: 2023Q1

REPORT INFORMATION
  Report Type: Report from Study
  Country: KR (occurrence: KR)
  Receive Date: 20230123
  Receipt Date: 20230127
  Transmission Date: 20230418
  Serious: Yes (Hospitalization)
  Sender: FDA-Public Use
  Company Number: KR-GLAXOSMITHKLINE-KR2023GSK004843

PATIENT

DRUGS (25)
  1. BELANTAMAB MAFODOTIN [Suspect]
     Active Substance: BELANTAMAB MAFODOTIN
     Indication: Plasma cell myeloma refractory
     Dosage: 187.75 MG, CYC, (2.5MG/KG)
     Route: 042
     Dates: start: 20211022, end: 20211022
  2. BELANTAMAB MAFODOTIN [Suspect]
     Active Substance: BELANTAMAB MAFODOTIN
     Dosage: 142.69 MG, CYC, (1.9 MG/KG)
     Route: 042
     Dates: start: 20211122, end: 20211122
  3. BELANTAMAB MAFODOTIN [Suspect]
     Active Substance: BELANTAMAB MAFODOTIN
     Dosage: 142.69 MG, CYC, (1.9 MG/KG)
     Route: 042
     Dates: start: 20221005
  4. POMALIDOMIDE [Suspect]
     Active Substance: POMALIDOMIDE
     Indication: Plasma cell myeloma refractory
     Dosage: 4 MG, CYC
     Route: 048
     Dates: start: 20211022
  5. DEXAMETHASONE [Suspect]
     Active Substance: DEXAMETHASONE
     Indication: Plasma cell myeloma refractory
     Dosage: 40 MG, CYC
     Route: 048
     Dates: start: 20211022, end: 20211213
  6. DEXAMETHASONE [Suspect]
     Active Substance: DEXAMETHASONE
     Dosage: 20 MG, CYC
     Route: 048
     Dates: start: 20221228
  7. NOTEC [Concomitant]
     Indication: Rhinitis
     Dosage: 10 MG, QD
     Route: 048
     Dates: start: 20211020
  8. LAMINA-G SOLN [Concomitant]
     Indication: Dyspepsia
     Dosage: 20 ML, TID
     Route: 048
     Dates: start: 20220802
  9. LAMINA-G SOLN [Concomitant]
     Dosage: 20 ML, TID
     Route: 048
     Dates: start: 20221219
  10. SINIL-M [Concomitant]
     Indication: Constipation prophylaxis
     Dosage: 500 MG, BID
     Route: 048
     Dates: start: 20220802
  11. SINIL-M [Concomitant]
     Dosage: 1000 MG, BID
     Route: 048
     Dates: start: 20221005, end: 20221218
  12. SINIL-M [Concomitant]
     Dosage: 1000 MG, BID
     Route: 048
     Dates: start: 20221219
  13. TWOLION [Concomitant]
     Indication: Rhinitis
     Dosage: 10 MG, BID
     Route: 048
     Dates: start: 20220919
  14. FLUTICASONE FUROATE [Concomitant]
     Active Substance: FLUTICASONE FUROATE
     Indication: Anosmia
     Dosage: 2 DF, QD, (SPRAY) (NASAL)
     Dates: start: 20220919
  15. ZOLPIDEM TARTRATE [Concomitant]
     Active Substance: ZOLPIDEM TARTRATE
     Indication: Insomnia
     Dosage: 10 MG, QD
     Route: 048
     Dates: start: 20221021, end: 20230110
  16. MEGACE F [Concomitant]
     Indication: Constipation
     Dosage: 5 ML, QD
     Route: 048
     Dates: start: 20221021, end: 20221218
  17. EVUSHELD [Concomitant]
     Active Substance: CILGAVIMAB\TIXAGEVIMAB
     Indication: COVID-19 prophylaxis
     Dosage: 300 MG, SINGLE
     Route: 042
     Dates: start: 20221021, end: 20221021
  18. MEPERIDINE [Concomitant]
     Active Substance: MEPERIDINE
     Indication: Anaesthesia
     Dosage: 25 MG, SINGLE
     Route: 042
     Dates: start: 20221101, end: 20221101
  19. LIDOCAINE [Concomitant]
     Active Substance: LIDOCAINE
     Indication: Anaesthesia
     Dosage: 10 ML, SINGLE
     Route: 042
     Dates: start: 20221101, end: 20221101
  20. CLEARDIN SOFT CAPSULE [Concomitant]
     Indication: Rhinitis
     Dosage: 10 MG, PRN
     Route: 048
     Dates: start: 20230113
  21. DULACKHAN [Concomitant]
     Indication: Constipation
     Dosage: 15 ML, QD
     Route: 048
     Dates: start: 20230113, end: 20230114
  22. CALCIUM POLYCARBOPHIL [Concomitant]
     Active Substance: CALCIUM POLYCARBOPHIL
     Indication: Constipation
     Dosage: 625 MG, BID
     Route: 048
     Dates: start: 20230114, end: 20230114
  23. POTASSIUM CHLORIDE [Concomitant]
     Active Substance: POTASSIUM CHLORIDE
     Indication: Blood potassium decreased
     Dosage: 10 ML, ONCE
     Route: 042
     Dates: start: 20230116
  24. PHOSTEN [Concomitant]
     Indication: Blood phosphorus decreased
     Dosage: 20 ML, ONCE
     Route: 042
     Dates: start: 20230116
  25. MYPOL [Concomitant]
     Indication: Headache
     Dosage: 1 GTT, QD
     Route: 048
     Dates: start: 20230116, end: 20230116

REACTIONS (1)
  - Pneumocystis jirovecii pneumonia [Recovering/Resolving]

NARRATIVE: CASE EVENT DATE: 20230112
